FAERS Safety Report 5714597-2 (Version None)
Quarter: 2008Q2

REPORT INFORMATION
  Report Type: 
  Country: None (occurrence: None)
  Receive Date: 20080423
  Receipt Date: 20080414
  Transmission Date: 20081010
  Serious: Yes (Hospitalization)
  Sender: FDA-Public Use
  Company Number: A0722424A

PATIENT
  Age: 36 Year
  Sex: Female
  Weight: 55.5 kg

DRUGS (7)
  1. ADVAIR HFA [Suspect]
     Indication: ASTHMA
     Dosage: 1PUFF TWICE PER DAY
     Route: 055
     Dates: start: 20011212, end: 20060718
  2. SEREVENT [Suspect]
     Indication: ASTHMA
     Dosage: 2PUFF TWICE PER DAY
     Route: 055
  3. CLARITIN [Concomitant]
  4. BIAXIN [Concomitant]
     Dates: start: 20041201
  5. RHINOCORT [Concomitant]
     Dates: start: 20041201
  6. ALBUTEROL [Concomitant]
  7. PROVENTIL [Concomitant]

REACTIONS (5)
  - ASTHMA [None]
  - CARDIOMYOPATHY [None]
  - RESPIRATORY DISTRESS [None]
  - RESPIRATORY FAILURE [None]
  - STATUS ASTHMATICUS [None]
